FAERS Safety Report 9245669 (Version 2)
Quarter: 2013Q2

REPORT INFORMATION
  Report Type: Spontaneous
  Country: US (occurrence: US)
  Receive Date: 20130422
  Receipt Date: 20130503
  Transmission Date: 20140414
  Serious: Yes (Other)
  Sender: FDA-Public Use
  Company Number: US-JNJFOC-20130409151

PATIENT
  Age: 9 Year
  Sex: Male
  Weight: 34.02 kg

DRUGS (3)
  1. ZYRTEC IR [Suspect]
     Route: 048
  2. ZYRTEC IR [Suspect]
     Indication: MULTIPLE ALLERGIES
     Dosage: 1 TABLET 1 TIME
     Route: 048
     Dates: start: 20130403, end: 20130403
  3. FLO-VENT [Concomitant]
     Indication: ASTHMA
     Route: 065

REACTIONS (1)
  - Convulsion [Not Recovered/Not Resolved]
